FAERS Safety Report 9831903 (Version 1)
Quarter: 2014Q1

REPORT INFORMATION
  Report Type: Spontaneous
  Country: US (occurrence: US)
  Receive Date: 20140121
  Receipt Date: 20140121
  Transmission Date: 20141002
  Serious: No
  Sender: FDA-Public Use
  Company Number: US-PFIZER INC-2014015391

PATIENT
  Age: 53 Year
  Sex: Male
  Weight: 79.37 kg

DRUGS (7)
  1. SUTENT [Suspect]
     Indication: METASTATIC RENAL CELL CARCINOMA
     Dosage: 50 MG, CYCLIC (DAILY FOR 2WEEKS ON AND 1 WEEK OFF)
     Dates: start: 20131025
  2. SIMVASTATIN [Concomitant]
     Dosage: UNK
  3. CO Q-10 [Concomitant]
     Dosage: UNK
  4. REGLAN [Concomitant]
     Dosage: UNK
  5. PEPCID AC [Concomitant]
     Dosage: UNK
  6. EXCEDRIN P.M. [Concomitant]
     Dosage: UNK
  7. LEVOTHYROXINE [Concomitant]
     Dosage: UNK

REACTIONS (12)
  - Nausea [Unknown]
  - Headache [Unknown]
  - Hair colour changes [Unknown]
  - Fatigue [Unknown]
  - Asthenia [Unknown]
  - Blood thyroid stimulating hormone increased [Unknown]
  - Oral pain [Unknown]
  - Gingival pain [Unknown]
  - Pain in jaw [Unknown]
  - Nail discolouration [Unknown]
  - Feeling cold [Unknown]
  - Palmar-plantar erythrodysaesthesia syndrome [Unknown]
